FAERS Safety Report 15090291 (Version 1)
Quarter: 2018Q2

REPORT INFORMATION
  Report Type: Spontaneous
  Country: US (occurrence: US)
  Receive Date: 20180629
  Receipt Date: 20180629
  Transmission Date: 20180711
  Serious: Yes (Other)
  Sender: FDA-Public Use
  Company Number: US-COVIS PHARMA B.V.-2018COV03695

PATIENT
  Age: 58 Year
  Sex: Male

DRUGS (15)
  1. CLARITIN [Concomitant]
     Active Substance: LORATADINE
  2. PRILOSEC [Suspect]
     Active Substance: OMEPRAZOLE MAGNESIUM
     Route: 048
  3. REVLIMID [Suspect]
     Active Substance: LENALIDOMIDE
     Indication: PLASMA CELL MYELOMA
     Dosage: 25 MG, 1X/DAY
     Route: 048
     Dates: start: 201604, end: 201606
  4. REVLIMID [Suspect]
     Active Substance: LENALIDOMIDE
     Dosage: 10 MG, 1X/DAY
     Route: 048
     Dates: start: 201611
  5. ACYCLOVIR. [Concomitant]
     Active Substance: ACYCLOVIR
  6. PIOGLITAZONE. [Concomitant]
     Active Substance: PIOGLITAZONE
  7. BYDUREON [Suspect]
     Active Substance: EXENATIDE
     Indication: DIABETES MELLITUS
     Dosage: UNK
     Dates: start: 201805
  8. IBUPROFEN. [Concomitant]
     Active Substance: IBUPROFEN
  9. REVLIMID [Suspect]
     Active Substance: LENALIDOMIDE
     Dosage: 10 MG, 1X/DAY
     Route: 048
     Dates: start: 201610
  10. ASPIRIN. [Concomitant]
     Active Substance: ASPIRIN
  11. LOSARTAN. [Concomitant]
     Active Substance: LOSARTAN
  12. METOPROLOL. [Suspect]
     Active Substance: METOPROLOL
     Route: 048
  13. MULTIVITAMINS [Concomitant]
     Active Substance: VITAMINS
  14. SERTRALINE [Concomitant]
     Active Substance: SERTRALINE HYDROCHLORIDE
  15. UNSPECIFIED MEDICATION [Concomitant]
     Active Substance: UNSPECIFIED INGREDIENT
     Indication: LAXATIVE SUPPORTIVE CARE

REACTIONS (2)
  - Diabetes mellitus [Recovered/Resolved]
  - Diarrhoea [Recovered/Resolved]

NARRATIVE: CASE EVENT DATE: 201802
